FAERS Safety Report 8276664-1 (Version None)
Quarter: 2012Q2

REPORT INFORMATION
  Report Type: 
  Country: None (occurrence: None)
  Receive Date: 20120412
  Receipt Date: 20120405
  Transmission Date: 20120825
  Serious: Yes (Hospitalization)
  Sender: FDA-Public Use
  Company Number: US-UCBSA-054111

PATIENT
  Age: 52 Year
  Sex: Female
  Weight: 47 kg

DRUGS (11)
  1. GOODYS POWDER [Concomitant]
     Indication: HEADACHE
     Dosage: 2 TABS
     Route: 048
     Dates: start: 20020101
  2. DARVOCET-N 50 [Concomitant]
     Indication: HEADACHE
     Route: 048
     Dates: start: 20060124
  3. AZITHROMYCIN [Concomitant]
     Indication: PNEUMONIA
     Route: 048
     Dates: start: 20120322, end: 20120326
  4. MEDROL [Concomitant]
     Indication: PNEUMONIA
     Dosage: TAPERING DOSE
     Route: 048
     Dates: start: 20120321, end: 20120325
  5. ALBUTEROL SULFATE [Concomitant]
     Indication: BRONCHOSPASM
     Route: 048
     Dates: start: 20120322
  6. CARAFATE [Concomitant]
     Indication: GASTRITIS
     Route: 048
     Dates: start: 20060124
  7. ADVAIR DISKUS 100/50 [Concomitant]
     Indication: PNEUMONIA
     Dosage: 250/50 MCG BID
     Route: 048
     Dates: start: 20120322
  8. LIBRAX [Concomitant]
     Indication: IRRITABLE BOWEL SYNDROME
     Route: 048
     Dates: start: 20040127
  9. CDP870 [Suspect]
     Indication: CROHN'S DISEASE
     Dosage: 400 MG, NO OF DOSES RECEIVED: 98
     Route: 058
     Dates: start: 20041101
  10. PHENERGAN HCL [Concomitant]
     Indication: NAUSEA
     Route: 048
     Dates: start: 20050421
  11. DELESTROGEN [Concomitant]
     Indication: HORMONE THERAPY
     Route: 030
     Dates: start: 20050411

REACTIONS (2)
  - PNEUMONIA [None]
  - MALNUTRITION [None]
